FAERS Safety Report 9921222 (Version 1)
Quarter: 2014Q1

REPORT INFORMATION
  Report Type: Spontaneous
  Country: US (occurrence: None)
  Receive Date: 20140221
  Receipt Date: 20140221
  Transmission Date: 20141002
  Serious: Yes (Other)
  Sender: FDA-Public Use
  Company Number: None

PATIENT
  Age: 56 Year
  Sex: Female
  Weight: 142 kg

DRUGS (3)
  1. LEVAQUIN [Suspect]
     Route: 048
     Dates: start: 20140124, end: 20140204
  2. VANCOMYCIN [Concomitant]
  3. ZOSYN [Concomitant]

REACTIONS (1)
  - Treatment failure [None]
